FAERS Safety Report 5701364-9 (Version None)
Quarter: 2008Q2

REPORT INFORMATION
  Report Type: 
  Country: None (occurrence: None)
  Receive Date: 20080407
  Receipt Date: 20080331
  Transmission Date: 20081010
  Serious: Yes (Other)
  Sender: FDA-Public Use
  Company Number: 066-21880-08030101

PATIENT
  Age: 78 Year
  Sex: Female
  Weight: 75 kg

DRUGS (5)
  1. REVLIMID [Suspect]
     Indication: MULTIPLE MYELOMA
     Dosage: 25, DAILY, ORAL
     Route: 048
     Dates: start: 20080212, end: 20080228
  2. PERINDOPRIL ERBUMINE [Concomitant]
  3. PENRAZOLE (OMEPRAZOLE) [Concomitant]
  4. LEXOTANIL (BROMAZEPAM) [Concomitant]
  5. SINTROM [Concomitant]

REACTIONS (9)
  - ABDOMINAL DISTENSION [None]
  - ANOREXIA [None]
  - BACK PAIN [None]
  - FACE OEDEMA [None]
  - HAEMATOCRIT DECREASED [None]
  - HAEMOGLOBIN DECREASED [None]
  - OSTEOLYSIS [None]
  - PITTING OEDEMA [None]
  - WHITE BLOOD CELL COUNT DECREASED [None]
